FAERS Safety Report 4758647-9 (Version None)
Quarter: 2005Q3

REPORT INFORMATION
  Report Type: 
  Country: None (occurrence: None)
  Receive Date: 20050901
  Receipt Date: 20050822
  Transmission Date: 20060218
  Serious: Yes (Hospitalization)
  Sender: FDA-Public Use
  Company Number: 2005GB01612

PATIENT
  Age: 23671 Day
  Sex: Female

DRUGS (8)
  1. IRESSA [Suspect]
     Indication: NON-SMALL CELL LUNG CANCER
     Route: 048
     Dates: end: 20050801
  2. GABAPENTIN [Concomitant]
  3. OXYCONTIN [Concomitant]
  4. CO-DANTHRUSATE [Concomitant]
  5. ONDANSETRON [Concomitant]
  6. LIGNOCAINE [Concomitant]
  7. OMEPRAZOLE [Concomitant]
  8. DEXAMETHASONE [Concomitant]

REACTIONS (1)
  - ABDOMINAL PAIN [None]
